FAERS Safety Report 8777312 (Version 5)
Quarter: 2013Q4

REPORT INFORMATION
  Report Type: Spontaneous
  Country: US (occurrence: US)
  Receive Date: 20120910
  Receipt Date: 20131219
  Transmission Date: 20140711
  Serious: Yes (Other)
  Sender: FDA-Public Use
  Company Number: US-ASTRAZENECA-2012SE12767

PATIENT
  Age: 82 Year
  Sex: Female
  Weight: 72.6 kg

DRUGS (15)
  1. TOPROL XL [Suspect]
     Route: 048
  2. CRESTOR [Suspect]
     Indication: BLOOD CHOLESTEROL ABNORMAL
     Route: 048
  3. NEXIUM [Suspect]
     Indication: HIATUS HERNIA
     Route: 048
     Dates: start: 2003, end: 2004
  4. METOPROLOL [Suspect]
     Indication: CARDIAC DISORDER
     Route: 048
     Dates: start: 200901
  5. OMEPRAZOLE [Suspect]
     Indication: FLATULENCE
     Dosage: OTC, 20 MG DAILY
     Route: 048
  6. OMEPRAZOLE [Suspect]
     Indication: ERUCTATION
     Dosage: OTC, 20 MG DAILY
     Route: 048
  7. OMEPRAZOLE [Suspect]
     Indication: FLATULENCE
     Dosage: DAILY
     Route: 048
     Dates: start: 2012
  8. OMEPRAZOLE [Suspect]
     Indication: ERUCTATION
     Dosage: DAILY
     Route: 048
     Dates: start: 2012
  9. OMEPRAZOLE [Suspect]
     Indication: FLATULENCE
     Dosage: OTC, 20 MG DAILY
     Route: 048
     Dates: start: 2012
  10. OMEPRAZOLE [Suspect]
     Indication: ERUCTATION
     Dosage: OTC, 20 MG DAILY
     Route: 048
     Dates: start: 2012
  11. CARAFATE [Concomitant]
  12. XANAX [Concomitant]
     Indication: ANXIETY
     Route: 048
     Dates: start: 2009
  13. ALEVE [Concomitant]
     Indication: PAIN
     Route: 048
     Dates: start: 2012
  14. DIGOXIN [Concomitant]
     Indication: HEART RATE ABNORMAL
     Route: 048
     Dates: start: 200901
  15. TYLENOL [Concomitant]
     Indication: PAIN
     Route: 048
     Dates: start: 2012

REACTIONS (19)
  - Ulcer haemorrhage [Unknown]
  - Deafness [Not Recovered/Not Resolved]
  - Stress [Unknown]
  - Panic attack [Unknown]
  - Hearing impaired [Unknown]
  - Adverse event [Unknown]
  - Eructation [Unknown]
  - Urinary tract infection [Unknown]
  - Flatulence [Unknown]
  - Weight decreased [Unknown]
  - Joint swelling [Unknown]
  - Cellulitis [Unknown]
  - Body height decreased [Unknown]
  - Hiatus hernia [Unknown]
  - Pain [Unknown]
  - Dyspnoea [Unknown]
  - Palpitations [Unknown]
  - Drug dose omission [Unknown]
  - Drug ineffective [Unknown]
